FAERS Safety Report 7402632 (Version 4)
Quarter: 2013Q2

REPORT INFORMATION
  Report Type: Spontaneous
  Country: US (occurrence: None)
  Receive Date: 20100521
  Receipt Date: 20130521
  Transmission Date: 20140414
  Serious: Yes (Death, Life-Threatening, Hospitalization, Other)
  Sender: FDA-Public Use
  Company Number: 2010001872

PATIENT
  Age: 79 Year
  Sex: Male
  Weight: 101 kg

DRUGS (1)
  1. ERLOTINIB (ERLOTINIB HYDROCHLORIDE) TABLET [Suspect]
     Indication: NON-SMALL CELL LUNG CANCER
     Dosage: ORAL
     Route: 048
     Dates: start: 20100428

REACTIONS (11)
  - Pleural effusion [None]
  - Myocardial ischaemia [None]
  - Thrombosis [None]
  - Myocardial infarction [None]
  - Coronary artery occlusion [None]
  - Coronary artery stenosis [None]
  - Coronary artery thrombosis [None]
  - Pneumothorax [None]
  - Malignant neoplasm progression [None]
  - Fall [None]
  - Confusional state [None]
